FAERS Safety Report 8212891-7 (Version None)
Quarter: 2012Q1

REPORT INFORMATION
  Report Type: 
  Country: None (occurrence: None)
  Receive Date: 20120315
  Receipt Date: 20120305
  Transmission Date: 20120608
  Serious: Yes (Hospitalization)
  Sender: FDA-Public Use
  Company Number: FR-PFIZER INC-2012062765

PATIENT
  Age: 80 Year
  Sex: Male

DRUGS (3)
  1. ZYVOX [Suspect]
     Indication: WOUND INFECTION STAPHYLOCOCCAL
     Dosage: UNK
     Dates: start: 20110801
  2. RIFADIN [Suspect]
     Indication: WOUND INFECTION STAPHYLOCOCCAL
     Dosage: UNK
     Dates: start: 20110801
  3. PANTOPRAZOLE [Suspect]
     Dosage: 40 MG
     Route: 048

REACTIONS (2)
  - CLOSTRIDIUM DIFFICILE COLITIS [None]
  - DIARRHOEA [None]
